FAERS Safety Report 7964111-6 (Version None)
Quarter: 2011Q4

REPORT INFORMATION
  Report Type: 
  Country: None (occurrence: None)
  Receive Date: 20111208
  Receipt Date: 20111129
  Transmission Date: 20120403
  Serious: Yes (Hospitalization)
  Sender: FDA-Public Use
  Company Number: JP-AMGEN-JPNCT2011061153

PATIENT
  Age: 71 Year
  Sex: Male
  Weight: 60 kg

DRUGS (7)
  1. FLUOROURACIL [Suspect]
     Indication: COLORECTAL CANCER
     Dosage: 680 MG, UNK
     Route: 040
     Dates: start: 20111021, end: 20111021
  2. PANITUMUMAB [Suspect]
     Indication: COLORECTAL CANCER
     Dosage: 390 MG, Q2WK
     Route: 041
     Dates: start: 20111021, end: 20111021
  3. FLUOROURACIL [Suspect]
     Dosage: 4000 MG, UNK
     Route: 041
     Dates: start: 20111021, end: 20111023
  4. LEVOLEUCOVORIN CALCIUM [Suspect]
     Indication: COLORECTAL CANCER
     Dosage: 340 MG, UNK
     Route: 041
     Dates: start: 20111021, end: 20111021
  5. DECADRON [Concomitant]
     Route: 041
     Dates: start: 20111021, end: 20111021
  6. ALOXI [Concomitant]
     Route: 041
     Dates: start: 20111021, end: 20111021
  7. OXALIPLATIN [Suspect]
     Indication: COLORECTAL CANCER
     Dosage: 145 MG, Q2WK
     Route: 041
     Dates: start: 20111021, end: 20111021

REACTIONS (3)
  - ORAL DISORDER [None]
  - PYREXIA [None]
  - PHARYNGEAL ERYTHEMA [None]
